FAERS Safety Report 21214266 (Version 1)
Quarter: 2022Q3

REPORT INFORMATION
  Report Type: Spontaneous
  Country: IT (occurrence: IT)
  Receive Date: 20220816
  Receipt Date: 20220816
  Transmission Date: 20221027
  Serious: No
  Sender: FDA-Public Use
  Company Number: IT-ETON PHARMACEUTICALS, INC-2022ETO000189

PATIENT
  Age: 5 Year
  Sex: Male

DRUGS (1)
  1. ALKINDI SPRINKLE [Suspect]
     Active Substance: HYDROCORTISONE
     Indication: Product used for unknown indication
     Dosage: UNK

REACTIONS (2)
  - Incorrect dose administered [Unknown]
  - No adverse event [Unknown]
